FAERS Safety Report 6512143-7 (Version None)
Quarter: 2009Q4

REPORT INFORMATION
  Report Type: 
  Country: None (occurrence: None)
  Receive Date: 20091222
  Receipt Date: 20090609
  Transmission Date: 20100525
  Serious: No
  Sender: FDA-Public Use
  Company Number: US-ASTRAZENECA-2009UW14831

PATIENT
  Age: 22645 Day
  Sex: Female
  Weight: 54.4 kg

DRUGS (4)
  1. CRESTOR [Suspect]
     Route: 048
     Dates: start: 20090602, end: 20090607
  2. VERAPAMIL [Concomitant]
  3. ZETIA [Concomitant]
  4. LEVOTHROID [Concomitant]

REACTIONS (5)
  - ABDOMINAL PAIN [None]
  - DIARRHOEA [None]
  - DYSPNOEA [None]
  - FEELING JITTERY [None]
  - MUSCULAR WEAKNESS [None]
